FAERS Safety Report 19689579 (Version 1)
Quarter: 2021Q3

REPORT INFORMATION
  Report Type: Spontaneous
  Country: US (occurrence: US)
  Receive Date: 20210811
  Receipt Date: 20210811
  Transmission Date: 20211014
  Serious: Yes (Hospitalization)
  Sender: FDA-Public Use
  Company Number: US-PRINSTON PHARMACEUTICAL INC.-2021PRN00291

PATIENT
  Age: 55 Year
  Sex: Female

DRUGS (1)
  1. PHENTERMINE HYDROCHLORIDE. [Suspect]
     Active Substance: PHENTERMINE HYDROCHLORIDE
     Indication: WEIGHT DECREASED
     Dosage: 37.5 MG, 1X/DAY
     Route: 065

REACTIONS (3)
  - Intestinal ischaemia [Recovered/Resolved]
  - Acute kidney injury [Recovered/Resolved]
  - Pseudomembranous colitis [Recovered/Resolved]
